FAERS Safety Report 4586661-5 (Version None)
Quarter: 2005Q1

REPORT INFORMATION
  Report Type: 
  Country: None (occurrence: None)
  Receive Date: 20050218
  Receipt Date: 20041013
  Transmission Date: 20050727
  Serious: No
  Sender: FDA-Public Use
  Company Number: US-BRISTOL-MYERS SQUIBB COMPANY-12732129

PATIENT
  Age: 78 Year
  Sex: Male
  Weight: 73 kg

DRUGS (12)
  1. TAXOL [Suspect]
     Indication: LUNG NEOPLASM MALIGNANT
     Route: 042
     Dates: start: 20041001, end: 20041001
  2. CARBOPLATIN [Suspect]
     Indication: LUNG NEOPLASM MALIGNANT
     Route: 042
     Dates: start: 20041001, end: 20041001
  3. DEXAMETHASONE [Concomitant]
     Dates: start: 20041001, end: 20041001
  4. ZOFRAN [Concomitant]
     Dates: start: 20041001, end: 20041001
  5. THEOPHYLLINE [Concomitant]
  6. ALBUTEROL [Concomitant]
  7. ATROVENT [Concomitant]
  8. ADVAIR DISKUS 100/50 [Concomitant]
  9. PRINIVIL [Concomitant]
  10. MULTIVITAMIN [Concomitant]
  11. ZETIA [Concomitant]
  12. SINGULAIR [Concomitant]

REACTIONS (2)
  - CONSTIPATION [None]
  - MYALGIA [None]
